FAERS Safety Report 6098172-9 (Version None)
Quarter: 2009Q1

REPORT INFORMATION
  Report Type: 
  Country: None (occurrence: None)
  Receive Date: 20090227
  Receipt Date: 20090219
  Transmission Date: 20090719
  Serious: Yes (Other)
  Sender: FDA-Public Use
  Company Number: PHHY2009FR02548

PATIENT
  Sex: Male
  Weight: 65 kg

DRUGS (3)
  1. EXELON [Suspect]
     Indication: DEMENTIA ALZHEIMER'S TYPE
     Dosage: 1.5 MG, BID
     Route: 048
     Dates: start: 20080107, end: 20080804
  2. KARDEGIC [Concomitant]
     Indication: CEREBROVASCULAR ACCIDENT
     Dosage: 160 MG, QD
     Route: 048
     Dates: start: 20050301
  3. TADENAN [Concomitant]
     Indication: BENIGN PROSTATIC HYPERPLASIA
     Dosage: 1 DF, BID
     Dates: start: 20020101

REACTIONS (9)
  - AGITATION [None]
  - ANOREXIA [None]
  - APATHY [None]
  - APHASIA [None]
  - CONFUSIONAL STATE [None]
  - DECREASED INTEREST [None]
  - DIZZINESS [None]
  - NAUSEA [None]
  - SOMNOLENCE [None]
